FAERS Safety Report 6970856-7 (Version None)
Quarter: 2010Q3

REPORT INFORMATION
  Report Type: 
  Country: None (occurrence: None)
  Receive Date: 20100908
  Receipt Date: 20100831
  Transmission Date: 20110219
  Serious: Yes (Other)
  Sender: FDA-Public Use
  Company Number: B0661235A

PATIENT
  Sex: Male

DRUGS (6)
  1. PAXIL [Suspect]
     Indication: DEPRESSION
     Dosage: 20MG PER DAY
     Route: 048
     Dates: start: 20091001
  2. PAXIL [Suspect]
     Dosage: 40MG PER DAY
     Route: 048
     Dates: end: 20100604
  3. PAXIL [Suspect]
     Dosage: 20MG PER DAY
     Route: 048
  4. MYSLEE [Concomitant]
     Indication: INSOMNIA
     Dosage: 10MG PER DAY
     Route: 048
     Dates: start: 20100304
  5. LEXOTAN [Concomitant]
     Indication: ANXIETY
     Dosage: 15MG PER DAY
     Route: 048
     Dates: start: 20090601
  6. ZOLOFT [Concomitant]
     Indication: DEPRESSION
     Dosage: 50MG PER DAY
     Route: 048
     Dates: start: 20090801

REACTIONS (11)
  - ABNORMAL BEHAVIOUR [None]
  - ACTIVATION SYNDROME [None]
  - AGGRESSION [None]
  - DIZZINESS [None]
  - EYE PAIN [None]
  - HEADACHE [None]
  - ILL-DEFINED DISORDER [None]
  - INSOMNIA [None]
  - TREATMENT NONCOMPLIANCE [None]
  - TREMOR [None]
  - WITHDRAWAL SYNDROME [None]
